FAERS Safety Report 25166951 (Version 1)
Quarter: 2025Q2

REPORT INFORMATION
  Report Type: Spontaneous
  Country: US (occurrence: None)
  Receive Date: 20250404
  Receipt Date: 20250404
  Transmission Date: 20250717
  Serious: Yes (Other)
  Sender: FDA-CTU
  Company Number: None

PATIENT
  Age: 55 Year
  Sex: Female
  Weight: 111.6 kg

DRUGS (16)
  1. HIBICLENS [Suspect]
     Active Substance: CHLORHEXIDINE GLUCONATE
     Indication: Preoperative care
     Dosage: 5 ML DAILY TOPICAL
     Route: 061
     Dates: start: 20250403, end: 20250403
  2. COSMETICS [Suspect]
     Active Substance: COSMETICS
  3. SOAP [Suspect]
     Active Substance: SOAP
  4. TERIFLUNOMIDE [Concomitant]
     Active Substance: TERIFLUNOMIDE
  5. ARMODAFINIL [Concomitant]
     Active Substance: ARMODAFINIL
  6. GABAPENTIN [Concomitant]
     Active Substance: GABAPENTIN
  7. METHOCARBAMOL [Concomitant]
     Active Substance: METHOCARBAMOL
  8. RESTASIS [Concomitant]
     Active Substance: CYCLOSPORINE
  9. B12 [Concomitant]
  10. VITAMIN D3 [Concomitant]
     Active Substance: CHOLECALCIFEROL
  11. CALCIUM [Concomitant]
     Active Substance: CALCIUM
  12. MELATONIN [Concomitant]
     Active Substance: MELATONIN
  13. CANNABIDIOL [Concomitant]
     Active Substance: CANNABIDIOL
  14. areds2 vitamin [Concomitant]
  15. MAGNESIUM [Concomitant]
     Active Substance: MAGNESIUM
  16. COENZYME Q10 [Concomitant]
     Active Substance: DIETARY SUPPLEMENT\UBIDECARENONE

REACTIONS (3)
  - Pruritus [None]
  - Erythema [None]
  - Urticaria [None]

NARRATIVE: CASE EVENT DATE: 20250403
